APPROVED DRUG PRODUCT: TECHNESCAN HDP
Active Ingredient: TECHNETIUM TC-99M OXIDRONATE KIT
Strength: N/A
Dosage Form/Route: INJECTABLE;INJECTION
Application: N018321 | Product #001
Applicant: CURIUM US LLC
Approved: Approved Prior to Jan 1, 1982 | RLD: Yes | RS: Yes | Type: RX